FAERS Safety Report 7684723-7 (Version None)
Quarter: 2011Q3

REPORT INFORMATION
  Report Type: 
  Country: None (occurrence: None)
  Receive Date: 20110810
  Receipt Date: 20110731
  Transmission Date: 20111222
  Serious: Yes (Life-Threatening, Hospitalization)
  Sender: FDA-Public Use
  Company Number: DSU-2011-03846

PATIENT
  Age: 60 Year
  Sex: Female
  Weight: 68.4932 kg

DRUGS (2)
  1. LISINOPRIL [Concomitant]
  2. BENICAR HCT [Suspect]
     Indication: HYPERTENSION
     Dosage: 20/12.5 MG, PER ORAL
     Route: 048
     Dates: start: 20110506, end: 20110506

REACTIONS (2)
  - HYPOTENSION [None]
  - RESPIRATORY DISORDER [None]
